FAERS Safety Report 20831838 (Version 1)
Quarter: 2022Q2

REPORT INFORMATION
  Report Type: Other
  Country: DE (occurrence: None)
  Receive Date: 20220516
  Receipt Date: 20220516
  Transmission Date: 20220721
  Serious: No
  Sender: FDA-Public Use
  Company Number: DE-ROCHE-3094973

PATIENT
  Age: 32 Year
  Sex: Female

DRUGS (4)
  1. OCRELIZUMAB [Suspect]
     Active Substance: OCRELIZUMAB
     Indication: Relapsing multiple sclerosis
     Route: 042
     Dates: start: 20201001, end: 20201015
  2. OCRELIZUMAB [Suspect]
     Active Substance: OCRELIZUMAB
     Route: 042
     Dates: start: 20210420
  3. COVID-19 VACCINE [Concomitant]
     Route: 030
  4. PREGABALIN [Concomitant]
     Active Substance: PREGABALIN
     Indication: Paraesthesia
     Route: 048
     Dates: start: 20210413, end: 20210420

REACTIONS (1)
  - COVID-19 [Recovered/Resolved]

NARRATIVE: CASE EVENT DATE: 20220226
